FAERS Safety Report 11826618 (Version 2)
Quarter: 2015Q4

REPORT INFORMATION
  Report Type: Report from Study
  Country: US (occurrence: US)
  Receive Date: 20151211
  Receipt Date: 20151222
  Transmission Date: 20160305
  Serious: Yes (Death, Hospitalization)
  Sender: FDA-Public Use
  Company Number: US-BAYER-2015-481629

PATIENT
  Age: 67 Year
  Sex: Male

DRUGS (7)
  1. LANTUS [Concomitant]
     Active Substance: INSULIN GLARGINE
  2. XIFAXAN [Concomitant]
     Active Substance: RIFAXIMIN
  3. PROCHLORPERAZINE. [Concomitant]
     Active Substance: PROCHLORPERAZINE
  4. FAMOTIDINE. [Concomitant]
     Active Substance: FAMOTIDINE
  5. FUROSEMIDE. [Concomitant]
     Active Substance: FUROSEMIDE
  6. NEXAVAR [Suspect]
     Active Substance: SORAFENIB
     Indication: HEPATOCELLULAR CARCINOMA
     Dosage: UNK
     Route: 048
     Dates: start: 20151104, end: 20151211
  7. LOSARTAN POTASSIUM. [Concomitant]
     Active Substance: LOSARTAN POTASSIUM

REACTIONS (2)
  - Death [Fatal]
  - Malaise [Not Recovered/Not Resolved]

NARRATIVE: CASE EVENT DATE: 20151211
